FAERS Safety Report 25302055 (Version 1)
Quarter: 2025Q2

REPORT INFORMATION
  Report Type: Report from Study
  Country: CA (occurrence: CA)
  Receive Date: 20250512
  Receipt Date: 20250512
  Transmission Date: 20250717
  Serious: Yes (Hospitalization, Other)
  Sender: ABBVIE
  Company Number: CA-ABBVIE-6127788

PATIENT
  Age: 53 Year
  Sex: Male

DRUGS (3)
  1. VENCLEXTA [Suspect]
     Active Substance: VENETOCLAX
     Indication: Acute myeloid leukaemia
     Dosage: LAST ADMIN DATE: 2025, DOSE STRENGTH:100MG
     Route: 048
     Dates: start: 20250113
  2. VENCLEXTA [Suspect]
     Active Substance: VENETOCLAX
     Indication: Acute myeloid leukaemia
     Dosage: FORM STRENGTH:100MG THERAPY START DATE 2025
     Route: 048
     Dates: start: 20250225
  3. AZACITIDINE [Concomitant]
     Active Substance: AZACITIDINE
     Indication: Product used for unknown indication

REACTIONS (4)
  - Bone marrow transplant [Recovering/Resolving]
  - Pneumonia [Recovered/Resolved]
  - Off label use [Unknown]
  - Cytopenia [Unknown]

NARRATIVE: CASE EVENT DATE: 20250101
